FAERS Safety Report 6776144-6 (Version None)
Quarter: 2010Q2

REPORT INFORMATION
  Report Type: 
  Country: None (occurrence: None)
  Receive Date: 20100615
  Receipt Date: 20100608
  Transmission Date: 20101027
  Serious: Yes (Other)
  Sender: FDA-Public Use
  Company Number: COM10-0769

PATIENT
  Sex: Female

DRUGS (1)
  1. QUININE SULFATE [Suspect]
     Indication: MUSCLE SPASMS
     Dates: start: 20010101

REACTIONS (2)
  - RENAL FAILURE [None]
  - THROMBOCYTOPENIA [None]
